FAERS Safety Report 16735385 (Version 1)
Quarter: 2019Q3

REPORT INFORMATION
  Report Type: Spontaneous
  Country: IT (occurrence: IT)
  Receive Date: 20190823
  Receipt Date: 20190823
  Transmission Date: 20191005
  Serious: Yes (Other)
  Sender: FDA-Public Use
  Company Number: IT-PFIZER INC-2019358471

PATIENT
  Age: 85 Year
  Sex: Female

DRUGS (6)
  1. WARFARIN SODIUM. [Concomitant]
     Active Substance: WARFARIN SODIUM
     Dosage: 5 MG, 1X/DAY
  2. FERROUS SULFATE. [Concomitant]
     Active Substance: FERROUS SULFATE
     Dosage: 1 DF, 1X/DAY
  3. SERTRALINE HCL [Suspect]
     Active Substance: SERTRALINE HYDROCHLORIDE
     Indication: DEPRESSION
     Dosage: 25 MG, 1X/DAY
     Route: 048
     Dates: start: 20180307, end: 20190215
  4. POTASSION [Concomitant]
     Active Substance: POTASSIUM CHLORIDE
     Dosage: 2 DF, 1X/DAY
     Route: 048
     Dates: start: 20190123
  5. BROMAZEPAM [Concomitant]
     Active Substance: BROMAZEPAM
     Dosage: 5 GTT, 1X/DAY
     Route: 048
     Dates: start: 20180307
  6. MACROGOL 4000 [Concomitant]
     Active Substance: POLYETHYLENE GLYCOL 4000
     Dosage: 1 DF, 1X/DAY

REACTIONS (1)
  - Altered state of consciousness [Recovered/Resolved]

NARRATIVE: CASE EVENT DATE: 20190215
